FAERS Safety Report 9322441 (Version 2)
Quarter: 2013Q2

REPORT INFORMATION
  Report Type: Spontaneous
  Country: FR (occurrence: FR)
  Receive Date: 20130531
  Receipt Date: 20130603
  Transmission Date: 20140414
  Serious: Yes (Other)
  Sender: FDA-Public Use
  Company Number: FR-ASTRAZENECA-2013SE31991

PATIENT
  Age: 22214 Day
  Sex: Male

DRUGS (6)
  1. INEXIUM [Suspect]
     Route: 048
  2. DEROXAT [Suspect]
     Route: 048
  3. COKENZEN [Suspect]
     Indication: HYPERTENSION
     Dosage: 8/12.5 MG/D
     Route: 048
  4. STELARA [Suspect]
     Indication: PSORIASIS
     Dosage: 1 DF EVERY TWO MONTHS
     Dates: start: 201204
  5. CORTANCYL [Suspect]
     Indication: PSORIASIS
     Route: 048
  6. HYPERIUM [Suspect]
     Indication: HYPERTENSION
     Route: 048

REACTIONS (3)
  - Hypertension [Recovered/Resolved]
  - Vomiting [Recovered/Resolved]
  - Headache [Recovered/Resolved]
